FAERS Safety Report 26067719 (Version 4)
Quarter: 2025Q4

REPORT INFORMATION
  Report Type: Spontaneous
  Country: CA (occurrence: CA)
  Receive Date: 20251120
  Receipt Date: 20251231
  Transmission Date: 20260117
  Serious: Yes (Other)
  Sender: TAKEDA
  Company Number: CA-TAKEDA-2025TUS102215

PATIENT
  Age: 24 Year
  Sex: Female

DRUGS (13)
  1. VENLAFAXINE HYDROCHLORIDE [Suspect]
     Active Substance: VENLAFAXINE HYDROCHLORIDE
     Indication: Major depression
     Dosage: UNK
  2. VENLAFAXINE HYDROCHLORIDE [Suspect]
     Active Substance: VENLAFAXINE HYDROCHLORIDE
     Indication: Generalised anxiety disorder
     Dosage: UNK
  3. ONDANSETRON [Suspect]
     Active Substance: ONDANSETRON
     Indication: Nausea
     Dosage: UNK
  4. PANTOPRAZOLE SODIUM [Suspect]
     Active Substance: PANTOPRAZOLE SODIUM
     Indication: Product used for unknown indication
     Dosage: UNK
  5. ONDANSETRON [Suspect]
     Active Substance: ONDANSETRON
     Indication: Nausea
     Dosage: UNK UNK, QD
     Dates: start: 2024
  6. ONDANSETRON [Suspect]
     Active Substance: ONDANSETRON
     Dosage: UNK
  7. MESALAMINE [Suspect]
     Active Substance: MESALAMINE
     Indication: Colitis ulcerative
     Dosage: UNK
  8. PREDNISONE [Suspect]
     Active Substance: PREDNISONE
     Indication: Product used for unknown indication
     Dosage: UNK
  9. PREDNISONE [Suspect]
     Active Substance: PREDNISONE
     Dosage: 12.5 MILLIGRAM, QD
  10. TRAZODONE [Suspect]
     Active Substance: TRAZODONE HYDROCHLORIDE
     Indication: Product used for unknown indication
     Dosage: UNK
  11. IRON [Suspect]
     Active Substance: IRON
     Indication: Anaemia
     Dosage: UNK
  12. ETRASIMOD ARGININE [Suspect]
     Active Substance: ETRASIMOD ARGININE
     Indication: Colitis ulcerative
     Dosage: 2 MILLIGRAM, QD
     Dates: end: 202506
  13. ENTOCORT [Concomitant]
     Active Substance: BUDESONIDE
     Indication: Colitis ulcerative
     Dosage: UNK

REACTIONS (12)
  - Colitis ulcerative [Unknown]
  - Dizziness [Recovered/Resolved]
  - Concomitant disease aggravated [Unknown]
  - C-reactive protein increased [Unknown]
  - Serum ferritin decreased [Unknown]
  - Anaemia [Unknown]
  - Swelling face [Unknown]
  - Weight increased [Unknown]
  - Acne [Unknown]
  - Nausea [Recovering/Resolving]
  - Labelled drug-drug interaction issue [Unknown]
  - Lack of concomitant drug effect [Unknown]

NARRATIVE: CASE EVENT DATE: 20220701
